FAERS Safety Report 13436547 (Version 3)
Quarter: 2017Q2

REPORT INFORMATION
  Report Type: Spontaneous
  Country: US (occurrence: US)
  Receive Date: 20170413
  Receipt Date: 20170525
  Transmission Date: 20170830
  Serious: Yes (Death, Hospitalization)
  Sender: FDA-Public Use
  Company Number: US-PFIZER INC-2017160490

PATIENT
  Age: 81 Year
  Sex: Female
  Weight: 89 kg

DRUGS (1)
  1. LYRICA [Suspect]
     Active Substance: PREGABALIN
     Indication: FIBROMYALGIA
     Dosage: 150 MG, 2X/DAY
     Route: 048

REACTIONS (9)
  - Infection [Unknown]
  - Death [Fatal]
  - Fall [Unknown]
  - Intentional product misuse [Unknown]
  - Pneumonia [Fatal]
  - Sepsis [Fatal]
  - Contusion [Unknown]
  - Dehydration [Unknown]
  - Head injury [Unknown]

NARRATIVE: CASE EVENT DATE: 201702
